FAERS Safety Report 7075126-7 (Version None)
Quarter: 2010Q4

REPORT INFORMATION
  Report Type: 
  Country: None (occurrence: None)
  Receive Date: 20101029
  Receipt Date: 20100308
  Transmission Date: 20110411
  Serious: No
  Sender: FDA-Public Use
  Company Number: US-WYE-H14012010

PATIENT
  Age: 70 Year
  Sex: Male
  Weight: 79.45 kg

DRUGS (6)
  1. ADVIL PM [Suspect]
     Indication: INSOMNIA
     Dosage: 2 CAPLETS EVERY NIGHT
     Route: 048
     Dates: start: 20091201, end: 20100201
  2. ADVIL PM [Suspect]
     Dosage: 1 CAPLET EVERY NIGHT
     Route: 048
     Dates: start: 20100201
  3. GEMFIBROZIL [Concomitant]
  4. ALLOPURINOL [Concomitant]
  5. LIPITOR [Concomitant]
  6. ENALAPRIL MALEATE [Concomitant]

REACTIONS (4)
  - CONDITION AGGRAVATED [None]
  - DIABETES MELLITUS [None]
  - DRUG EFFECT PROLONGED [None]
  - SOMNOLENCE [None]
